FAERS Safety Report 5275238-4 (Version None)
Quarter: 2007Q1

REPORT INFORMATION
  Report Type: 
  Country: None (occurrence: None)
  Receive Date: 20061219
  Receipt Date: 20060911
  Transmission Date: 20070707
  Serious: Yes (Other)
  Sender: FDA-Public Use
  Company Number: US-JNJFOC-20060401736

PATIENT
  Age: 20 Year
  Sex: Female
  Weight: 83.9154 kg

DRUGS (4)
  1. ORTHO EVRA [Suspect]
     Indication: CONTRACEPTION
     Dosage: 3 DOSE(S), 1 IN 4 WEEK, TRANSDERMAL
     Route: 062
     Dates: start: 20040701, end: 20040901
  2. ULTRAM [Concomitant]
  3. XANAX [Concomitant]
  4. SUDAFED 12 HOUR [Concomitant]

REACTIONS (1)
  - PULMONARY EMBOLISM [None]
